FAERS Safety Report 7734155-8 (Version None)
Quarter: 2011Q3

REPORT INFORMATION
  Report Type: 
  Country: None (occurrence: None)
  Receive Date: 20110906
  Receipt Date: 20110906
  Transmission Date: 20111222
  Serious: Yes (Hospitalization)
  Sender: FDA-Public Use
  Company Number: None

PATIENT
  Age: 88 Year
  Sex: Male

DRUGS (1)
  1. ACETAMINOPHEN AND OXYCODONE HCL [Suspect]
     Dosage: 1 TAB PRN PO
     Route: 048
     Dates: start: 20110516, end: 20110607

REACTIONS (1)
  - CONSTIPATION [None]
